FAERS Safety Report 8256240 (Version 2)
Quarter: 2012Q4

REPORT INFORMATION
  Report Type: 
  Country: ES (occurrence: US)
  Receive Date: 20111121
  Receipt Date: 20120918
  Transmission Date: 20130627
  Serious: Yes (Other)
  Sender: FDA-Public Use
  Company Number: PHHY2011US099994

PATIENT
  Age: 57 Year
  Sex: Female

DRUGS (2)
  1. ZOLEDRONIC ACID [Suspect]
  2. LETROZOLE [Suspect]

REACTIONS (5)
  - Lymphoid tissue hyperplasia [Unknown]
  - Papule [Not Recovered/Not Resolved]
  - Skin plaque [Not Recovered/Not Resolved]
  - Pruritus [Not Recovered/Not Resolved]
  - Pseudolymphoma [Not Recovered/Not Resolved]
